FAERS Safety Report 5602725-9 (Version None)
Quarter: 2008Q1

REPORT INFORMATION
  Report Type: 
  Country: None (occurrence: None)
  Receive Date: 20080125
  Receipt Date: 20080124
  Transmission Date: 20080703
  Serious: Yes (Hospitalization)
  Sender: FDA-Public Use
  Company Number: US-BRISTOL-MYERS SQUIBB COMPANY-14052690

PATIENT
  Age: 61 Year
  Sex: Female
  Weight: 56 kg

DRUGS (17)
  1. CYTOXAN [Suspect]
     Indication: BREAST CANCER
     Dosage: LAST DOSE RECIEVED ON 31OCT'06, DOSE REDUCED TO 450MG/KG ON 21NOV'06.
     Route: 042
     Dates: start: 20061017
  2. ADRIAMYCIN PFS [Suspect]
     Indication: BREAST CANCER
     Dosage: LAST DOSE RECIEVED ON 31OCT'06. DOSE REDUCED TO 45MG/M2 ON 21NOV'06.
     Route: 042
     Dates: start: 20061017
  3. NEULASTA [Suspect]
     Indication: COLONY STIMULATING FACTOR PROPHYLAXIS
     Dosage: LAST DOSE RECIEVED ON 01NOV'06.
     Route: 058
     Dates: start: 20061018
  4. BEVACIZUMAB [Suspect]
     Indication: BREAST CANCER
     Dosage: LAST DOSE RECIEVED ON 31OCT'06.
     Route: 042
     Dates: start: 20061017
  5. AMBIEN [Concomitant]
     Indication: INSOMNIA
     Route: 048
     Dates: start: 20050101
  6. HYDROCHLOROTHIAZIDE [Concomitant]
     Indication: HYPERTENSION
     Route: 048
     Dates: start: 20050101
  7. POTASSIUM CHLORIDE [Concomitant]
     Indication: MINERAL SUPPLEMENTATION
     Dosage: 1 DOSAGE FORM=1 TAB.
     Route: 048
     Dates: start: 20050101
  8. NAPROXEN [Concomitant]
     Indication: ARTHRALGIA
     Route: 048
     Dates: start: 20050101
  9. PREVACID [Concomitant]
     Indication: PEPTIC ULCER
     Route: 048
     Dates: start: 20050101
  10. M.V.I. [Concomitant]
     Indication: VITAMIN SUPPLEMENTATION
     Route: 048
     Dates: start: 20050101
  11. CALCIUM GLUCONATE [Concomitant]
     Indication: MINERAL SUPPLEMENTATION
     Route: 048
     Dates: start: 20050101
  12. DOCUSATE [Concomitant]
     Indication: HAEMORRHOIDS
     Route: 048
     Dates: start: 20050101
  13. DOCUSATE [Concomitant]
     Indication: CONSTIPATION
     Route: 048
     Dates: start: 20050101
  14. LEVAQUIN [Concomitant]
     Indication: PYREXIA
     Route: 048
     Dates: start: 20061024, end: 20061031
  15. ALOXI [Concomitant]
     Indication: PROPHYLAXIS
     Route: 042
     Dates: start: 20061017
  16. DECADRON [Concomitant]
     Indication: PROPHYLAXIS
     Route: 042
     Dates: start: 20061017
  17. ATIVAN [Concomitant]
     Indication: PROPHYLAXIS
     Dates: start: 20061017

REACTIONS (2)
  - LIVER FUNCTION TEST ABNORMAL [None]
  - PYREXIA [None]
